FAERS Safety Report 11489003 (Version 1)
Quarter: 2015Q3

REPORT INFORMATION
  Report Type: Spontaneous
  Country: US (occurrence: US)
  Receive Date: 20150910
  Receipt Date: 20150910
  Transmission Date: 20151125
  Serious: No
  Sender: FDA-Public Use
  Company Number: US-ROCHE-1480957

PATIENT
  Age: 55 Year
  Sex: Female

DRUGS (3)
  1. SOVALDI [Suspect]
     Active Substance: SOFOSBUVIR
     Indication: HEPATITIS C
     Route: 065
  2. RIBASPHERE RIBAPAK [Suspect]
     Active Substance: RIBAVIRIN
     Indication: HEPATITIS C
     Dosage: 400/600 MG
     Route: 065
  3. PEGASYS [Suspect]
     Active Substance: PEGINTERFERON ALFA-2A
     Indication: HEPATITIS C
     Dosage: 180MCG/0.5 ML
     Route: 058
     Dates: start: 20141017

REACTIONS (6)
  - Hypotension [Unknown]
  - Fatigue [Unknown]
  - Abdominal distension [Unknown]
  - Nausea [Unknown]
  - Oral pain [Unknown]
  - Headache [Unknown]

NARRATIVE: CASE EVENT DATE: 20141018
